FAERS Safety Report 16562217 (Version 2)
Quarter: 2020Q4

REPORT INFORMATION
  Report Type: Spontaneous
  Country: CA (occurrence: CA)
  Receive Date: 20190711
  Receipt Date: 20201204
  Transmission Date: 20210113
  Serious: Yes (Other)
  Sender: FDA-Public Use
  Company Number: CA-SAMSUNG BIOEPIS-SB-2019-17720

PATIENT
  Age: 57 Year
  Sex: Female
  Weight: 48 kg

DRUGS (5)
  1. DIMENHYDRINATE. [Concomitant]
     Active Substance: DIMENHYDRINATE
     Indication: PRODUCT USED FOR UNKNOWN INDICATION
     Route: 065
  2. INFLIXIMAB [Suspect]
     Active Substance: INFLIXIMAB
     Indication: COLITIS ULCERATIVE
     Route: 042
  3. HYDROCORTISONE. [Concomitant]
     Active Substance: HYDROCORTISONE
     Indication: PREMEDICATION
     Route: 042
  4. ACETAMINOPHEN. [Concomitant]
     Active Substance: ACETAMINOPHEN
     Indication: PREMEDICATION
     Route: 048
  5. PREDNISONE. [Concomitant]
     Active Substance: PREDNISONE
     Indication: PRODUCT USED FOR UNKNOWN INDICATION
     Dosage: THERAPY DURATION: -102.0
     Route: 048

REACTIONS (15)
  - Contusion [Not Recovered/Not Resolved]
  - Malaise [Not Recovered/Not Resolved]
  - Asthenia [Recovered/Resolved]
  - Condition aggravated [Recovered/Resolved]
  - Blood pressure increased [Not Recovered/Not Resolved]
  - Chest pain [Recovered/Resolved]
  - Pyrexia [Recovered/Resolved]
  - Feeding disorder [Not Recovered/Not Resolved]
  - Dizziness [Recovered/Resolved]
  - Blood pressure fluctuation [Not Recovered/Not Resolved]
  - Back pain [Recovered/Resolved]
  - Chills [Recovered/Resolved]
  - Feeling cold [Recovered/Resolved]
  - Blood pressure decreased [Not Recovered/Not Resolved]
  - Sinusitis [Not Recovered/Not Resolved]
